FAERS Safety Report 18752116 (Version 1)
Quarter: 2021Q1

REPORT INFORMATION
  Report Type: Spontaneous
  Country: US (occurrence: US)
  Receive Date: 20210118
  Receipt Date: 20210118
  Transmission Date: 20210419
  Serious: Yes (Other)
  Sender: FDA-Public Use
  Company Number: US-HIKMA PHARMACEUTICALS USA INC.-US-H14001-21-53350

PATIENT
  Age: 34 Year
  Sex: Male

DRUGS (3)
  1. OXYCODONE [Suspect]
     Active Substance: OXYCODONE
     Dosage: HE RECEIVED OPIOIDS AT AN AVERAGE DOSE OF 50 MORPHINE MILLIGRAM EQUIVALENT (MME) DAILY OVER A 32?MON
  2. OXYCODONE [Suspect]
     Active Substance: OXYCODONE
     Dosage: HIS LAST PRESCRIPTION OPIATE USE CONFIRMED THROUGH REVIEW OF THE STATE PRESCRIBING DATABASE WAS FOR
  3. OXYCODONE [Suspect]
     Active Substance: OXYCODONE
     Indication: BACK PAIN
     Dosage: 90 MME DAILY
     Route: 065

REACTIONS (3)
  - Hypothalamic pituitary adrenal axis suppression [Unknown]
  - Erectile dysfunction [Unknown]
  - Adrenal insufficiency [Unknown]
